FAERS Safety Report 8844417 (Version 1)
Quarter: 2012Q4

REPORT INFORMATION
  Report Type: 
  Country: CA (occurrence: CA)
  Receive Date: 20121017
  Receipt Date: 20121017
  Transmission Date: 20130627
  Serious: Yes (Death)
  Sender: FDA-Public Use
  Company Number: PHHY2012CA091477

PATIENT
  Sex: Female

DRUGS (1)
  1. SANDOSTATIN LAR [Suspect]
     Indication: PHAEOCHROMOCYTOMA
     Dosage: 30 mg, once a month
     Route: 030
     Dates: start: 20100101

REACTIONS (1)
  - Death [Fatal]
